FAERS Safety Report 7600904-2 (Version None)
Quarter: 2011Q2

REPORT INFORMATION
  Report Type: 
  Country: None (occurrence: None)
  Receive Date: 20110629
  Receipt Date: 20110615
  Transmission Date: 20111010
  Serious: Yes (Hospitalization)
  Sender: FDA-Public Use
  Company Number: 2011MA007233

PATIENT
  Age: 65 Year
  Sex: Male

DRUGS (2)
  1. LEVYTHROXINE SODIUM [Concomitant]
  2. HYDROCHLOROTHIAZIDE [Suspect]

REACTIONS (6)
  - ELECTROCARDIOGRAM U-WAVE ABNORMALITY [None]
  - HYPOKALAEMIA [None]
  - MUSCULAR WEAKNESS [None]
  - FATIGUE [None]
  - NERVE CONDUCTION STUDIES ABNORMAL [None]
  - ELECTROCARDIOGRAM T WAVE AMPLITUDE DECREASED [None]
